FAERS Safety Report 16249151 (Version 1)
Quarter: 2019Q2

REPORT INFORMATION
  Report Type: Spontaneous
  Country: GB (occurrence: GB)
  Receive Date: 20190429
  Receipt Date: 20190429
  Transmission Date: 20190711
  Serious: Yes (Hospitalization, Disabling)
  Sender: FDA-Public Use
  Company Number: GB-TEVA-2019-GB-1041948

PATIENT
  Age: 48 Year
  Sex: Female
  Weight: 71.6 kg

DRUGS (4)
  1. LEVOFLOXACIN. [Concomitant]
     Active Substance: LEVOFLOXACIN
  2. NITROFURANTOIN. [Suspect]
     Active Substance: NITROFURANTOIN
     Indication: PROPHYLAXIS URINARY TRACT INFECTION
     Dosage: 50 MILLIGRAM DAILY; AT NIGHT
     Route: 048
     Dates: start: 20140101, end: 20190322
  3. SALBUTAMOL [Concomitant]
     Active Substance: ALBUTEROL
  4. CLENIL MODULITE [Concomitant]
     Active Substance: BECLOMETHASONE DIPROPIONATE

REACTIONS (13)
  - Bacterial infection [Unknown]
  - Abdominal pain upper [Unknown]
  - Sputum discoloured [Unknown]
  - Nausea [Unknown]
  - Viral infection [Unknown]
  - Pain of skin [Unknown]
  - Rhinitis [Unknown]
  - Myalgia [Unknown]
  - Pulmonary fibrosis [Not Recovered/Not Resolved]
  - Pyrexia [Unknown]
  - Epistaxis [Unknown]
  - Oropharyngeal pain [Unknown]
  - Productive cough [Unknown]

NARRATIVE: CASE EVENT DATE: 20190322
